FAERS Safety Report 11807763 (Version 1)
Quarter: 2015Q4

REPORT INFORMATION
  Report Type: Spontaneous
  Country: US (occurrence: US)
  Receive Date: 20151207
  Receipt Date: 20151207
  Transmission Date: 20160305
  Serious: No
  Sender: FDA-Public Use
  Company Number: US-BAYER-2015-479510

PATIENT
  Age: 67 Year
  Sex: Male
  Weight: 104.31 kg

DRUGS (2)
  1. ALEVE PM [Suspect]
     Active Substance: DIPHENHYDRAMINE HYDROCHLORIDE\NAPROXEN SODIUM
     Dosage: 1 DF, PRN
     Route: 048
  2. ASPIRIN [ACETYLSALICYLIC ACID] [Concomitant]

REACTIONS (2)
  - Drug effect incomplete [None]
  - Product use issue [None]
